FAERS Safety Report 16534654 (Version 2)
Quarter: 2021Q1

REPORT INFORMATION
  Report Type: Spontaneous
  Country: CZ (occurrence: CZ)
  Receive Date: 20190705
  Receipt Date: 20210216
  Transmission Date: 20210419
  Serious: Yes (Death, Hospitalization, Other)
  Sender: FDA-Public Use
  Company Number: CZ-BRISTOL-MYERS SQUIBB COMPANY-BMS-2019-065440

PATIENT
  Sex: Male

DRUGS (3)
  1. NIVOLUMAB [Suspect]
     Active Substance: NIVOLUMAB
     Indication: RENAL CELL CARCINOMA
     Dosage: UNK
     Route: 065
     Dates: start: 20181129
  2. CABOMETYX [Suspect]
     Active Substance: CABOZANTINIB S-MALATE
     Indication: RENAL CANCER
     Dosage: 40 MG, UNK
     Route: 048
     Dates: start: 2018
  3. CABOMETYX [Suspect]
     Active Substance: CABOZANTINIB S-MALATE
     Dosage: 40 MG, UNK
     Route: 048
     Dates: start: 201807, end: 201812

REACTIONS (7)
  - Stomatitis [Unknown]
  - Asthenia [Unknown]
  - Malignant neoplasm progression [Unknown]
  - Campylobacter infection [Unknown]
  - Palmar-plantar erythrodysaesthesia syndrome [Unknown]
  - Guillain-Barre syndrome [Fatal]
  - Diarrhoea [Unknown]

NARRATIVE: CASE EVENT DATE: 2018
